FAERS Safety Report 25326063 (Version 1)
Quarter: 2025Q2

REPORT INFORMATION
  Report Type: Spontaneous
  Country: US (occurrence: None)
  Receive Date: 20250516
  Receipt Date: 20250516
  Transmission Date: 20250717
  Serious: Yes (Other)
  Sender: FDA-CTU
  Company Number: None

PATIENT
  Age: 78 Year
  Sex: Female
  Weight: 85.73 kg

DRUGS (9)
  1. COMBIGAN [Suspect]
     Active Substance: BRIMONIDINE TARTRATE\TIMOLOL MALEATE
     Indication: Glaucoma
     Dosage: 9 H   O.. *BOTH) BID (2 X D) EYE DROPS??ESTIMATE DURATION: - DAYS- 10 DAYS?
     Dates: start: 20250413, end: 20250425
  2. Ventolin inhaler PRN (OCC.) [Concomitant]
  3. LOSARTAN [Concomitant]
     Active Substance: LOSARTAN
  4. LUMIGAN [Concomitant]
     Active Substance: BIMATOPROST
  5. VITAMIN D3 [Concomitant]
     Active Substance: CHOLECALCIFEROL
  6. B3 [Concomitant]
     Dosage: FREQUENCY : DAILY;?
  7. Milk Thistle PRN [Concomitant]
  8. VITAMIN C [Concomitant]
     Active Substance: ASCORBIC ACID
  9. TYLENOL [Concomitant]
     Active Substance: ACETAMINOPHEN

REACTIONS (2)
  - Tachycardia [None]
  - Heart rate increased [None]

NARRATIVE: CASE EVENT DATE: 20250425
